FAERS Safety Report 23675982 (Version 1)
Quarter: 2024Q1

REPORT INFORMATION
  Report Type: Spontaneous
  Country: US (occurrence: US)
  Receive Date: 20240327
  Receipt Date: 20240327
  Transmission Date: 20240409
  Serious: Yes (Hospitalization, Other)
  Sender: FDA-Public Use
  Company Number: US-ABBVIE-5691302

PATIENT
  Age: 81 Year
  Sex: Male

DRUGS (2)
  1. IMBRUVICA [Suspect]
     Active Substance: IBRUTINIB
     Indication: Chronic lymphocytic leukaemia
     Dosage: FORM STRENGTH: 400 MG
     Route: 048
     Dates: start: 20231027, end: 202311
  2. ELIQUIS [Concomitant]
     Active Substance: APIXABAN
     Indication: Product used for unknown indication

REACTIONS (7)
  - Tumour lysis syndrome [Unknown]
  - Fall [Unknown]
  - Pancytopenia [Unknown]
  - Pain [Unknown]
  - Rehabilitation therapy [Unknown]
  - Dizziness [Unknown]
  - Wound infection [Unknown]

NARRATIVE: CASE EVENT DATE: 20230101
